FAERS Safety Report 4315214-9 (Version None)
Quarter: 2004Q1

REPORT INFORMATION
  Report Type: 
  Country: None (occurrence: None)
  Receive Date: 20040310
  Receipt Date: 20040219
  Transmission Date: 20041129
  Serious: Yes (Death, Other)
  Sender: FDA-Public Use
  Company Number: US_0401100164

PATIENT
  Age: 32 Year
  Sex: Male
  Weight: 68 kg

DRUGS (1)
  1. XIGRIS [Suspect]
     Indication: SEPSIS
     Dosage: 150 MG
     Dates: start: 20031210, end: 20031214

REACTIONS (11)
  - CYANOSIS [None]
  - FIBRIN D DIMER INCREASED [None]
  - LIVEDO RETICULARIS [None]
  - MULTI-ORGAN FAILURE [None]
  - NECROSIS [None]
  - PLATELET COUNT DECREASED [None]
  - PNEUMONIA [None]
  - PROTHROMBIN TIME PROLONGED [None]
  - PULMONARY FUNCTION TEST ABNORMAL [None]
  - RENAL FAILURE [None]
  - RESPIRATORY FAILURE [None]
